FAERS Safety Report 16136411 (Version 1)
Quarter: 2019Q1

REPORT INFORMATION
  Report Type: Spontaneous
  Country: US (occurrence: US)
  Receive Date: 20190329
  Receipt Date: 20190329
  Transmission Date: 20190418
  Serious: Yes (Other)
  Sender: FDA-Public Use
  Company Number: US-SHIRE-US201909530

PATIENT
  Age: 60 Year
  Sex: Female

DRUGS (2)
  1. CMED [Concomitant]
     Indication: PRODUCT USED FOR UNKNOWN INDICATION
  2. XIIDRA [Suspect]
     Active Substance: LIFITEGRAST
     Indication: DRY EYE
     Route: 047
     Dates: start: 20190314, end: 20190319

REACTIONS (7)
  - Dysgeusia [Unknown]
  - Dyspepsia [Unknown]
  - Rhinorrhoea [Unknown]
  - Vision blurred [Unknown]
  - Choking [Unknown]
  - Cough [Unknown]
  - Abdominal pain upper [Unknown]

NARRATIVE: CASE EVENT DATE: 20190316
